FAERS Safety Report 10024956 (Version 1)
Quarter: 2014Q1

REPORT INFORMATION
  Report Type: Spontaneous
  Country: US (occurrence: None)
  Receive Date: 20140314
  Receipt Date: 20140314
  Transmission Date: 20141002
  Serious: Yes (Other)
  Sender: FDA-Public Use
  Company Number: SYM-2014-18287

PATIENT
  Sex: 0

DRUGS (3)
  1. ZYCLARA [Suspect]
     Indication: PRECANCEROUS CELLS PRESENT
     Dosage: 1 PACKET DAILY, TOPICAL
     Route: 061
     Dates: start: 20140118
  2. MULTIVITAMINS (MULTIVITAMINS) (ERGOCALCIFEROL, ASCORBIC ACID, FOLIC ACID, THIAMINE HYDROCHLORIDE, RETINOL, RIBOFLAVIN, NICOTINAMIDE, PANTHENOL) [Concomitant]
  3. ALPHA-LIPOIC VITAMIN B (VITAMIN B-COMPLEX, OTHER COMBINATIONS) [Concomitant]

REACTIONS (5)
  - Haemorrhage [None]
  - Dizziness [None]
  - Fatigue [None]
  - Nausea [None]
  - Burning sensation [None]
